FAERS Safety Report 9320420 (Version 1)
Quarter: 2013Q2

REPORT INFORMATION
  Report Type: Spontaneous
  Country: GB (occurrence: GB)
  Receive Date: 20130530
  Receipt Date: 20130530
  Transmission Date: 20140414
  Serious: Yes (Hospitalization, Other)
  Sender: FDA-Public Use
  Company Number: GB-B.I. PHARMACEUTICALS,INC./RIDGEFIELD-2013-UK-01150UK

PATIENT
  Age: 27 Year
  Sex: Female
  Weight: 92 kg

DRUGS (9)
  1. ATROVENT [Suspect]
     Indication: ASTHMA
     Dosage: 500 MG
     Route: 055
     Dates: start: 20130429, end: 20130430
  2. ENOXAPARIN [Suspect]
     Indication: PROPHYLAXIS
     Route: 051
     Dates: start: 20130429, end: 20130429
  3. AMITRIPTYLINE [Concomitant]
  4. FEXOFENADINE [Concomitant]
  5. FLUTICASONE FUROATE [Concomitant]
  6. GLUCOSAMINE [Concomitant]
  7. PARACETAMOL [Concomitant]
  8. SALBUTAMOL [Concomitant]
  9. SERETIDE [Concomitant]

REACTIONS (11)
  - Throat tightness [Recovered/Resolved]
  - Tachycardia [Recovered/Resolved]
  - Body temperature increased [Unknown]
  - Dry mouth [Unknown]
  - Injection site pain [Not Recovered/Not Resolved]
  - Injection site mass [Not Recovered/Not Resolved]
  - Injection site swelling [Not Recovered/Not Resolved]
  - Rash [Recovered/Resolved]
  - Skin discolouration [Not Recovered/Not Resolved]
  - Skin warm [Unknown]
  - Urticaria [Recovered/Resolved]
